FAERS Safety Report 10211371 (Version 1)
Quarter: 2014Q2

REPORT INFORMATION
  Report Type: Spontaneous
  Country: US (occurrence: None)
  Receive Date: 20140530
  Receipt Date: 20140530
  Transmission Date: 20141212
  Serious: Yes (Life-Threatening, Hospitalization)
  Sender: FDA-Public Use
  Company Number: None

PATIENT
  Age: 78 Year
  Sex: Male
  Weight: 106.6 kg

DRUGS (1)
  1. XARELTO 20 MG [Suspect]
     Indication: ATRIAL FIBRILLATION
     Dosage: 2.5 WEEKS PRIOR, ONE TABLET, QHS/BEDTIME, ORAL
     Route: 048

REACTIONS (2)
  - Upper gastrointestinal haemorrhage [None]
  - Epistaxis [None]
